FAERS Safety Report 4555667-4 (Version None)
Quarter: 2005Q1

REPORT INFORMATION
  Report Type: 
  Country: None (occurrence: None)
  Receive Date: 20050105
  Receipt Date: 20041103
  Transmission Date: 20050727
  Serious: No
  Sender: FDA-Public Use
  Company Number: SU-2004-002803

PATIENT
  Sex: Female

DRUGS (2)
  1. BENICAR HCT [Suspect]
     Indication: HYPERTENSION
     Dosage: 40.25 MG QD PO
     Route: 048
  2. BENICAR HCT [Suspect]
     Indication: HYPERTENSION

REACTIONS (3)
  - DEHYDRATION [None]
  - PSORIASIS [None]
  - STOMACH DISCOMFORT [None]
